FAERS Safety Report 4515791-9 (Version None)
Quarter: 2004Q4

REPORT INFORMATION
  Report Type: 
  Country: None (occurrence: None)
  Receive Date: 20041001
  Receipt Date: 20040621
  Transmission Date: 20050328
  Serious: Yes (Other)
  Sender: FDA-Public Use
  Company Number: 001916

PATIENT
  Age: 71 Year
  Sex: Female

DRUGS (5)
  1. MEDROXYPROGESTERONE ACETATE [Suspect]
     Dates: start: 19981230, end: 19990115
  2. MEDROXYPROGESTERONE ACETATE [Concomitant]
  3. CYCRIN [Suspect]
     Dates: start: 19981230, end: 19990115
  4. PREMARIN [Suspect]
     Dates: start: 19980101, end: 19980129
  5. PROVERA [Suspect]
     Dates: start: 19980101, end: 19980129

REACTIONS (1)
  - CEREBROVASCULAR ACCIDENT [None]
